FAERS Safety Report 5031748-6 (Version None)
Quarter: 2006Q2

REPORT INFORMATION
  Report Type: 
  Country: None (occurrence: None)
  Receive Date: 20060619
  Receipt Date: 20060606
  Transmission Date: 20061013
  Serious: Yes (Hospitalization)
  Sender: FDA-Public Use
  Company Number: 2002-12-0330

PATIENT
  Age: 22 Year
  Sex: Female
  Weight: 53 kg

DRUGS (3)
  1. VIRAFERONPEG [Suspect]
     Indication: HIV INFECTION
     Dosage: 1 UG/KG QWK
     Dates: start: 20021205, end: 20021205
  2. COMBIVIR [Concomitant]
  3. KALETRA [Concomitant]

REACTIONS (14)
  - AMNESIA [None]
  - ASTHENIA [None]
  - DEPRESSED LEVEL OF CONSCIOUSNESS [None]
  - DISORIENTATION [None]
  - EPILEPSY [None]
  - FALL [None]
  - HEADACHE [None]
  - HYPERTONIA [None]
  - LOSS OF CONSCIOUSNESS [None]
  - MALAISE [None]
  - MENINGITIS [None]
  - MYALGIA [None]
  - NAUSEA [None]
  - VERTIGO [None]
